FAERS Safety Report 16118045 (Version 1)
Quarter: 2019Q1

REPORT INFORMATION
  Report Type: Spontaneous
  Country: US (occurrence: US)
  Receive Date: 20190326
  Receipt Date: 20190326
  Transmission Date: 20190418
  Serious: Yes (Other)
  Sender: FDA-Public Use
  Company Number: US-BAYER-2019-059306

PATIENT
  Age: 32 Year
  Sex: Female

DRUGS (1)
  1. KYLEENA [Suspect]
     Active Substance: LEVONORGESTREL
     Indication: CONTRACEPTION
     Dosage: 17.5 MCG/24HR, CONT
     Route: 015
     Dates: start: 20190218, end: 20190318

REACTIONS (4)
  - Pain [None]
  - Device dislocation [Recovered/Resolved]
  - Abdominal pain [None]
  - Procedural nausea [None]

NARRATIVE: CASE EVENT DATE: 20190218
